FAERS Safety Report 18690946 (Version 1)
Quarter: 2021Q1

REPORT INFORMATION
  Report Type: Spontaneous
  Country: ES (occurrence: ES)
  Receive Date: 20210101
  Receipt Date: 20210101
  Transmission Date: 20210419
  Serious: Yes (Hospitalization)
  Sender: FDA-Public Use
  Company Number: ES-SA-2020SA366311

PATIENT

DRUGS (5)
  1. ENOXAPARIN SODIUM. [Suspect]
     Active Substance: ENOXAPARIN SODIUM
     Indication: PULMONARY ARTERY THROMBOSIS
     Dosage: 60 MG, QD
     Route: 058
     Dates: start: 20201119, end: 20201124
  2. ACETYLSALICYLIC ACID [Interacting]
     Active Substance: ASPIRIN
     Indication: DRUG DELIVERY DEVICE PLACEMENT
     Dosage: 100 MG, QD
     Route: 048
     Dates: start: 20201119
  3. ACETYLSALICYLIC ACID [Concomitant]
     Active Substance: ASPIRIN
     Route: 048
     Dates: start: 20201119, end: 20201119
  4. ATORVASTATIN [Concomitant]
     Active Substance: ATORVASTATIN
     Indication: PROPHYLAXIS
     Dosage: 80 MG, QD
     Route: 048
     Dates: start: 20201120
  5. CLOPIDOGREL BISULFATE. [Interacting]
     Active Substance: CLOPIDOGREL BISULFATE
     Indication: DRUG DELIVERY DEVICE PLACEMENT
     Dosage: 75 MG, QD
     Route: 048
     Dates: start: 20201120

REACTIONS (3)
  - Catheter site haematoma [Recovering/Resolving]
  - Drug interaction [Unknown]
  - Paraesthesia [Recovered/Resolved]

NARRATIVE: CASE EVENT DATE: 20201121
